FAERS Safety Report 6140352-8 (Version None)
Quarter: 2009Q1

REPORT INFORMATION
  Report Type: 
  Country: None (occurrence: None)
  Receive Date: 20090330
  Receipt Date: 20090312
  Transmission Date: 20090719
  Serious: Yes (Death)
  Sender: FDA-Public Use
  Company Number: WAES 0902USA02997

PATIENT
  Age: 69 Year
  Sex: Male

DRUGS (2)
  1. HYZAAR [Suspect]
     Indication: HYPERTENSION
     Dosage: 1 TAB/DAILY PO
     Route: 048
     Dates: start: 20070904, end: 20080528
  2. ADALAT CC [Concomitant]

REACTIONS (1)
  - FALL [None]
